FAERS Safety Report 14365390 (Version 2)
Quarter: 2018Q1

REPORT INFORMATION
  Report Type: Spontaneous
  Country: US (occurrence: US)
  Receive Date: 20180108
  Receipt Date: 20180129
  Transmission Date: 20180509
  Serious: Yes (Hospitalization)
  Sender: FDA-Public Use
  Company Number: US-BIOGEN-2018BI00506399

PATIENT
  Age: 8 Year
  Sex: Female

DRUGS (12)
  1. TYLENOL [Concomitant]
     Active Substance: ACETAMINOPHEN
     Indication: PRODUCT USED FOR UNKNOWN INDICATION
     Dosage: ELIXIR; TAKE 6MLS BY MOUTH EVERY SIX HOURS
     Route: 048
  2. NEURONTIN [Concomitant]
     Active Substance: GABAPENTIN
     Indication: PRODUCT USED FOR UNKNOWN INDICATION
     Dosage: TAKE 75MG BY G TUBE TWO TIMES DAILY AND 1.5 ML TWICE A DAY AT 0700 AND 2100
     Route: 050
  3. VITAMIN D3 [Concomitant]
     Active Substance: CHOLECALCIFEROL
     Indication: PRODUCT USED FOR UNKNOWN INDICATION
     Dosage: 400 UNITS/ML TAKE BY G-TUBE ONCE DAILY, 1 TSP DAILY
     Route: 050
  4. COLACE [Concomitant]
     Active Substance: DOCUSATE SODIUM
     Indication: PRODUCT USED FOR UNKNOWN INDICATION
     Dosage: 50MG/5ML LIQUID, TAKE 50 MG BY G-TUBE NIGHTLY, 5ML IN HOURS OF SLEEP
     Route: 050
  5. MAPAP [Concomitant]
     Active Substance: ACETAMINOPHEN
     Indication: PRODUCT USED FOR UNKNOWN INDICATION
     Route: 048
  6. MOTRIN [Concomitant]
     Active Substance: IBUPROFEN
     Indication: PRODUCT USED FOR UNKNOWN INDICATION
     Dosage: 50MG/1.25 MLORAL DROPS,TAKE 3.55 ML (142MG TOTAL) BY MOUTH EVERY 6 HOURS AS NEEDED FOR PAIN OR FEVER
     Route: 048
  7. ADVIL [Concomitant]
     Active Substance: IBUPROFEN
     Indication: PRODUCT USED FOR UNKNOWN INDICATION
     Dosage: 50MG/1.25 MLORAL DROPS,TAKE 3.55 ML (142MG TOTAL) BY MOUTH EVERY 6 HOURS AS NEEDED FOR PAIN OR FEVER
     Route: 048
  8. SPINRAZA [Suspect]
     Active Substance: NUSINERSEN
     Indication: SPINAL MUSCULAR ATROPHY
     Route: 037
     Dates: start: 20171206
  9. ZYRTEC [Concomitant]
     Active Substance: CETIRIZINE HYDROCHLORIDE
     Indication: PRODUCT USED FOR UNKNOWN INDICATION
     Dosage: TAKE 5MG BY G-TUBE EVERY EVENING AND 1 TSP PER OREM IN HOURS OF SLEEP
     Route: 050
  10. MIRALAX [Concomitant]
     Active Substance: POLYETHYLENE GLYCOL 3350
     Indication: PRODUCT USED FOR UNKNOWN INDICATION
     Dosage: TAKE BY G-TUBE NIGHTLY, 2 TSPS PER PER OREM IN HOURS OF SLEEP. MIX 4-8 OZ OF FLUID PRIOR TO TAKING.
     Route: 050
  11. SPINRAZA [Suspect]
     Active Substance: NUSINERSEN
     Route: 037
     Dates: start: 20171206
  12. MORPHINE [Concomitant]
     Active Substance: MORPHINE
     Indication: PRODUCT USED FOR UNKNOWN INDICATION
     Dosage: 10MG/5ML, TAKE 3 MG BY MOUTH EVERY SIX HOURS AND 1 MG PRN
     Route: 048

REACTIONS (1)
  - Anaesthetic complication pulmonary [Recovered/Resolved]

NARRATIVE: CASE EVENT DATE: 20180103
